FAERS Safety Report 8195456-5 (Version None)
Quarter: 2012Q1

REPORT INFORMATION
  Report Type: 
  Country: None (occurrence: None)
  Receive Date: 20120308
  Receipt Date: 20120229
  Transmission Date: 20120608
  Serious: Yes (Hospitalization)
  Sender: FDA-Public Use
  Company Number: PHHY2012BR018096

PATIENT
  Sex: Male

DRUGS (1)
  1. TRILEPTAL [Suspect]
     Indication: CEREBRAL HAEMATOMA
     Dosage: 1 DF, TID
     Route: 048

REACTIONS (4)
  - MENINGOENCEPHALITIS BACTERIAL [None]
  - BRAIN OEDEMA [None]
  - SPEECH DISORDER [None]
  - CEREBRAL HAEMATOMA [None]
